FAERS Safety Report 7420560-6 (Version None)
Quarter: 2011Q2

REPORT INFORMATION
  Report Type: 
  Country: None (occurrence: None)
  Receive Date: 20110418
  Receipt Date: 20110415
  Transmission Date: 20111010
  Serious: No
  Sender: FDA-Public Use
  Company Number: US-PFIZER INC-2011083629

PATIENT
  Sex: Female
  Weight: 61.2 kg

DRUGS (1)
  1. CELEBREX [Suspect]
     Indication: ARTHRALGIA
     Dosage: UNK
     Route: 048
     Dates: start: 20101201

REACTIONS (3)
  - PRURITUS GENERALISED [None]
  - RASH [None]
  - DIARRHOEA [None]
